FAERS Safety Report 9221848 (Version 1)
Quarter: 2013Q2

REPORT INFORMATION
  Report Type: Spontaneous
  Country: US (occurrence: US)
  Receive Date: 20130410
  Receipt Date: 20130410
  Transmission Date: 20140414
  Serious: Yes (Other)
  Sender: FDA-Public Use
  Company Number: US-BAYER-2013-036415

PATIENT
  Sex: Female

DRUGS (1)
  1. MIRENA [Suspect]
     Dosage: 52 MG, CONT
     Route: 015

REACTIONS (7)
  - Pregnancy with contraceptive device [Recovered/Resolved]
  - Drug ineffective [None]
  - Device difficult to use [None]
  - Premature labour [None]
  - Heart rate abnormal [None]
  - Uterine haemorrhage [None]
  - Device expulsion [None]
